FAERS Safety Report 10241322 (Version 1)
Quarter: 2014Q2

REPORT INFORMATION
  Report Type: Spontaneous
  Country: IN (occurrence: IN)
  Receive Date: 20140617
  Receipt Date: 20140617
  Transmission Date: 20141212
  Serious: Yes (Other)
  Sender: FDA-Public Use
  Company Number: IN-WATSON-2014-12501

PATIENT
  Age: 28 Year
  Sex: Male

DRUGS (2)
  1. MIRTAZAPINE (UNKNOWN) [Suspect]
     Indication: SLEEP DISORDER
     Dosage: 15 MG, UNKNOWN
     Route: 065
  2. MIRTAZAPINE (UNKNOWN) [Suspect]
     Indication: DRUG DETOXIFICATION

REACTIONS (1)
  - Periodic limb movement disorder [Recovered/Resolved]
